FAERS Safety Report 12889644 (Version 1)
Quarter: 2016Q4

REPORT INFORMATION
  Report Type: Spontaneous
  Country: GB (occurrence: GB)
  Receive Date: 20161027
  Receipt Date: 20161027
  Transmission Date: 20170207
  Serious: Yes (Death, Life-Threatening, Other)
  Sender: FDA-Public Use
  Company Number: GB-TEVA-706341ACC

PATIENT
  Age: 45 Year
  Sex: Male
  Weight: 78 kg

DRUGS (11)
  1. ZAPONEX [Suspect]
     Active Substance: CLOZAPINE
     Indication: SCHIZOPHRENIA
     Dosage: 400 MILLIGRAM DAILY;
     Route: 048
     Dates: start: 20080612, end: 20160116
  2. AMISULPRIDE [Concomitant]
     Active Substance: AMISULPRIDE
     Dosage: 300 MILLIGRAM DAILY;
  3. NAPROXEN. [Concomitant]
     Active Substance: NAPROXEN
  4. LORAZEPAM. [Concomitant]
     Active Substance: LORAZEPAM
  5. DEPAKOTE [Concomitant]
     Active Substance: DIVALPROEX SODIUM
  6. DULOXETINE. [Concomitant]
     Active Substance: DULOXETINE
  7. TRAMADOL. [Suspect]
     Active Substance: TRAMADOL
  8. ZAPAIN [Concomitant]
     Active Substance: ACETAMINOPHEN\CODEINE PHOSPHATE
  9. LAMOTRIGINE. [Concomitant]
     Active Substance: LAMOTRIGINE
  10. ZOLPIDEM [Concomitant]
     Active Substance: ZOLPIDEM\ZOLPIDEM TARTRATE
     Dosage: 10 MILLIGRAM DAILY; NOCTE
  11. ATORVASTATIN [Concomitant]
     Active Substance: ATORVASTATIN

REACTIONS (9)
  - Hepatic steatosis [Not Recovered/Not Resolved]
  - Toxicity to various agents [Fatal]
  - Arteriosclerosis coronary artery [Fatal]
  - Pulmonary oedema [Not Recovered/Not Resolved]
  - Aspiration [Not Recovered/Not Resolved]
  - Acute left ventricular failure [Not Recovered/Not Resolved]
  - Steatohepatitis [Not Recovered/Not Resolved]
  - Respiratory tract congestion [Not Recovered/Not Resolved]
  - Antipsychotic drug level increased [Fatal]
